FAERS Safety Report 3970365 (Version 2)
Quarter: 2020Q1

REPORT INFORMATION
  Report Type: Spontaneous
  Country: IT (occurrence: IT)
  Receive Date: 20030708
  Receipt Date: 20200318
  Transmission Date: 20200409
  Serious: Yes (Hospitalization, Other)
  Sender: FDA-Public Use
  Company Number: PHBS2003IT06598

PATIENT
  Age: 59 Year
  Sex: Male
  Weight: 88.7 kg

DRUGS (10)
  1. PREDNISONE. [Suspect]
     Active Substance: PREDNISONE
     Indication: FOCAL SEGMENTAL GLOMERULOSCLEROSIS
     Dosage: 24 MG, QOD, 24MG/48H 15 MONTHS
     Route: 065
     Dates: start: 199610
  2. CYCLOSPORINE. [Suspect]
     Active Substance: CYCLOSPORINE
     Indication: GLOMERULOSCLEROSIS
     Dosage: 3 MG, QD
     Route: 048
     Dates: start: 199610, end: 199711
  3. FUROSEMIDE. [Suspect]
     Active Substance: FUROSEMIDE
     Indication: PRODUCT USED FOR UNKNOWN INDICATION
     Dosage: UNK
     Route: 042
     Dates: start: 199801, end: 1998
  4. ATENOLOL. [Concomitant]
     Active Substance: ATENOLOL
     Indication: PRODUCT USED FOR UNKNOWN INDICATION
     Dosage: UNK
     Route: 065
  5. NIFEDIPINE. [Concomitant]
     Active Substance: NIFEDIPINE
     Indication: PRODUCT USED FOR UNKNOWN INDICATION
     Dosage: UNK
     Route: 065
  6. ALLOPURINOL. [Concomitant]
     Active Substance: ALLOPURINOL
     Indication: PRODUCT USED FOR UNKNOWN INDICATION
     Dosage: UNK
     Route: 065
  7. PREDNISONE. [Suspect]
     Active Substance: PREDNISONE
     Dosage: UNK1MG/KG/DAY FOR 8
     Route: 065
     Dates: start: 1998
  8. ENALAPRIL [Concomitant]
     Active Substance: ENALAPRIL
     Indication: PRODUCT USED FOR UNKNOWN INDICATION
     Dosage: 10 MG, QD
     Route: 065
     Dates: end: 199510
  9. ENALAPRIL [Concomitant]
     Active Substance: ENALAPRIL
     Dosage: 20 MG, QD
     Route: 048
     Dates: start: 199510
  10. CYCLOPHOSPHAMIDE. [Suspect]
     Active Substance: CYCLOPHOSPHAMIDE
     Indication: FOCAL SEGMENTAL GLOMERULOSCLEROSIS
     Dosage: 100 MG/DAY
     Route: 065
     Dates: start: 199803, end: 199810

REACTIONS (14)
  - Oliguria [Unknown]
  - Generalised oedema [Unknown]
  - Eosinophilia [Unknown]
  - Tubulointerstitial nephritis [Unknown]
  - Hypertension [Unknown]
  - Skin lesion [Recovered/Resolved]
  - Blood creatinine increased [Unknown]
  - Nephropathy toxic [Unknown]
  - Anaemia [Unknown]
  - Occult blood positive [Unknown]
  - Glomerular filtration rate decreased [Unknown]
  - Kaposi^s sarcoma [Recovered/Resolved]
  - Rash [Unknown]
  - Pruritus [Unknown]
